FAERS Safety Report 5483985-4 (Version None)
Quarter: 2007Q4

REPORT INFORMATION
  Report Type: 
  Country: None (occurrence: None)
  Receive Date: 20071012
  Receipt Date: 20071008
  Transmission Date: 20080405
  Serious: Yes (Life-Threatening)
  Sender: FDA-Public Use
  Company Number: IL-SANOFI-SYNTHELABO-A01200711330

PATIENT
  Age: 70 Year
  Sex: Female

DRUGS (1)
  1. ELOXATIN [Suspect]
     Indication: COLON CANCER STAGE III
     Dosage: UNK
     Dates: start: 20070901, end: 20070901

REACTIONS (1)
  - LARYNGOSPASM [None]
